FAERS Safety Report 7543239-9 (Version None)
Quarter: 2011Q2

REPORT INFORMATION
  Report Type: 
  Country: None (occurrence: None)
  Receive Date: 20110613
  Receipt Date: 20110606
  Transmission Date: 20111010
  Serious: Yes (Death, Hospitalization)
  Sender: FDA-Public Use
  Company Number: US-CELGENEUS-163-50794-11050763

PATIENT
  Age: 73 Year
  Sex: Male
  Weight: 66.693 kg

DRUGS (8)
  1. GEMTUZUMAB [Suspect]
     Dosage: 3 MILLIGRAM/SQ. METER
     Route: 051
     Dates: start: 20110418, end: 20110418
  2. VIDAZA [Suspect]
     Dosage: 75 MILLIGRAM/SQ. METER
     Route: 051
     Dates: start: 20110411, end: 20110417
  3. VYTORIN [Concomitant]
     Dosage: 10-40MG, 1 TABLET
     Route: 048
  4. VIDAZA [Suspect]
     Indication: ACUTE MYELOID LEUKAEMIA
     Dosage: 75 MILLIGRAM/SQ. METER
     Route: 065
     Dates: start: 20110325, end: 20110331
  5. ENALAPRIL MALEATE [Concomitant]
     Dosage: 5 MILLIGRAM
     Route: 048
  6. METOPROLOL SUCCINATE [Concomitant]
     Dosage: 50 MILLIGRAM
     Route: 048
  7. GEMTUZUMAB [Suspect]
     Dosage: 3 MILLIGRAM/SQ. METER
     Route: 051
     Dates: start: 20110325, end: 20110331
  8. OXYGEN [Concomitant]
     Dosage: 4 LITERS
     Route: 045
     Dates: start: 20110418

REACTIONS (5)
  - ANGINA PECTORIS [None]
  - DISSEMINATED INTRAVASCULAR COAGULATION [None]
  - SUDDEN DEATH [None]
  - DYSPNOEA [None]
  - HYPOTENSION [None]
